FAERS Safety Report 25435613 (Version 1)
Quarter: 2025Q2

REPORT INFORMATION
  Report Type: Spontaneous
  Country: US (occurrence: None)
  Receive Date: 20250613
  Receipt Date: 20250613
  Transmission Date: 20250716
  Serious: Yes (Other)
  Sender: FDA-CTU
  Company Number: None

PATIENT
  Age: 37 Week
  Sex: Female
  Weight: 82.35 kg

DRUGS (10)
  1. METOCLOPRAMIDE [Suspect]
     Active Substance: METOCLOPRAMIDE
     Indication: Product used for unknown indication
     Dosage: 120 TABLET(S) 4 TIMES A DAY ORAL ?
     Route: 048
     Dates: start: 20250327, end: 20250415
  2. PANTOPRAZOLE [Concomitant]
     Active Substance: PANTOPRAZOLE
  3. TRULANCE [Concomitant]
     Active Substance: PLECANATIDE
  4. pleaceanatide [Concomitant]
  5. bactrum800 [Concomitant]
  6. AMLODIPINE [Concomitant]
     Active Substance: AMLODIPINE BESYLATE
  7. diclofe nac [Concomitant]
  8. prenayalrug [Concomitant]
  9. LOSARTAN [Concomitant]
     Active Substance: LOSARTAN
  10. TYLENOL PM [Concomitant]
     Active Substance: ACETAMINOPHEN\DIPHENHYDRAMINE

REACTIONS (3)
  - Swollen tongue [None]
  - Mouth swelling [None]
  - Dyspnoea [None]

NARRATIVE: CASE EVENT DATE: 20250328
